FAERS Safety Report 10990396 (Version 1)
Quarter: 2015Q2

REPORT INFORMATION
  Report Type: Spontaneous
  Country: DE (occurrence: DE)
  Receive Date: 20150406
  Receipt Date: 20150406
  Transmission Date: 20150821
  Serious: Yes (Disabling)
  Sender: FDA-Public Use
  Company Number: DE-SA-2015SA041278

PATIENT
  Age: 46 Year
  Sex: Female
  Weight: 116 kg

DRUGS (4)
  1. L-THYROXIN WINTHROP [Concomitant]
     Route: 048
  2. OMEPRAZOLE. [Concomitant]
     Active Substance: OMEPRAZOLE
     Dosage: STRENGTH: 20 MG
     Route: 048
  3. RIZATRIPTAN [Concomitant]
     Active Substance: RIZATRIPTAN
     Dosage: STRENGTH: 10 MG
     Route: 048
  4. LANTUS [Suspect]
     Active Substance: INSULIN GLARGINE
     Indication: TYPE 2 DIABETES MELLITUS
     Route: 058
     Dates: start: 201408, end: 201412

REACTIONS (2)
  - Migraine [Recovered/Resolved]
  - Condition aggravated [Recovered/Resolved]

NARRATIVE: CASE EVENT DATE: 201408
